FAERS Safety Report 5859640-5 (Version None)
Quarter: 2008Q3

REPORT INFORMATION
  Report Type: 
  Country: None (occurrence: None)
  Receive Date: 20080827
  Receipt Date: 20080819
  Transmission Date: 20090109
  Serious: Yes (Congenital Anomaly)
  Sender: FDA-Public Use
  Company Number: GB-JNJFOC-20080804257

PATIENT
  Sex: Female

DRUGS (6)
  1. SPORANOX [Suspect]
     Indication: DRUG EXPOSURE DURING PREGNANCY
  2. CEPHALEXIN [Concomitant]
  3. FOLIC ACID [Concomitant]
  4. CITALOPRAM HYDROBROMIDE [Concomitant]
  5. AMITRIPTYLINE HCL [Concomitant]
  6. FLUOXETINE [Concomitant]

REACTIONS (1)
  - TALIPES [None]
